FAERS Safety Report 11925685 (Version 2)
Quarter: 2016Q1

REPORT INFORMATION
  Report Type: Spontaneous
  Country: JP (occurrence: JP)
  Receive Date: 20160118
  Receipt Date: 20160121
  Transmission Date: 20160526
  Serious: Yes (Hospitalization)
  Sender: FDA-Public Use
  Company Number: PHJP2015JP021279

PATIENT
  Age: 77 Year
  Sex: Female

DRUGS (2)
  1. TRERIEF [Concomitant]
     Active Substance: ZONISAMIDE
     Indication: PRODUCT USED FOR UNKNOWN INDICATION
     Dosage: 25 MG, QD
     Route: 048
  2. STALEVO [Suspect]
     Active Substance: CARBIDOPA\ENTACAPONE\LEVODOPA
     Indication: PARKINSON^S DISEASE
     Dosage: 1 DF, UNK (ENTACAPONE 100 MG, LEVODOPA 100 MG, CARBIDOPA 10 MG)
     Route: 048

REACTIONS (4)
  - Asthenia [Recovering/Resolving]
  - Dysphagia [Recovering/Resolving]
  - Wrong technique in product usage process [Unknown]
  - Parkinson^s disease [Unknown]

NARRATIVE: CASE EVENT DATE: 20151127
